FAERS Safety Report 7948991-6 (Version None)
Quarter: 2011Q4

REPORT INFORMATION
  Report Type: 
  Country: None (occurrence: None)
  Receive Date: 20111130
  Receipt Date: 20111123
  Transmission Date: 20120403
  Serious: Yes (Other)
  Sender: FDA-Public Use
  Company Number: JP-PFIZER INC-2011223156

PATIENT
  Age: 64 Year
  Sex: Female

DRUGS (1)
  1. MIGLITOL [Suspect]
     Dosage: 150 MG, DAILY DOSE
     Route: 048
     Dates: start: 20100831, end: 20100909

REACTIONS (2)
  - PARAESTHESIA ORAL [None]
  - DYSARTHRIA [None]
